FAERS Safety Report 15259857 (Version 1)
Quarter: 2018Q3

REPORT INFORMATION
  Report Type: Spontaneous
  Country: US (occurrence: US)
  Receive Date: 20180809
  Receipt Date: 20180809
  Transmission Date: 20181010
  Serious: Yes (Other)
  Sender: FDA-Public Use
  Company Number: US-SA-2016SA232085

PATIENT
  Age: 39 Year
  Sex: Female

DRUGS (1)
  1. LEMTRADA [Suspect]
     Active Substance: ALEMTUZUMAB
     Dosage: 12 MG,QD
     Route: 041
     Dates: start: 20161219, end: 20161222

REACTIONS (4)
  - Menstruation irregular [Not Recovered/Not Resolved]
  - Herpes zoster [Unknown]
  - Bradycardia [Recovered/Resolved]
  - Infection [Unknown]

NARRATIVE: CASE EVENT DATE: 20161221
